FAERS Safety Report 16810177 (Version 1)
Quarter: 2019Q3

REPORT INFORMATION
  Report Type: Spontaneous
  Country: US (occurrence: US)
  Receive Date: 20190725
  Receipt Date: 20190725
  Transmission Date: 20191005
  Serious: Yes (Hospitalization)
  Sender: FDA-Public Use
  Company Number: None

PATIENT
  Age: 61 Year
  Sex: Female

DRUGS (4)
  1. ELIQUIS [Concomitant]
     Active Substance: APIXABAN
  2. TYLENOL WITH CODEINE [Concomitant]
     Active Substance: ACETAMINOPHEN\CODEINE PHOSPHATE
  3. PREDNISONE. [Concomitant]
     Active Substance: PREDNISONE
  4. AFINITOR [Suspect]
     Active Substance: EVEROLIMUS

REACTIONS (2)
  - Cerebral palsy [None]
  - Thrombosis [None]

NARRATIVE: CASE EVENT DATE: 20190527
